FAERS Safety Report 6670849-3 (Version None)
Quarter: 2010Q2

REPORT INFORMATION
  Report Type: 
  Country: None (occurrence: None)
  Receive Date: 20100407
  Receipt Date: 20100313
  Transmission Date: 20101027
  Serious: Yes (Death, Hospitalization)
  Sender: FDA-Public Use
  Company Number: 981005-107013820

PATIENT
  Sex: Male
  Weight: 63.5 kg

DRUGS (2)
  1. LEVOFLOXACIN [Suspect]
     Indication: PNEUMONIA BACTERIAL
     Route: 048
     Dates: start: 19980909, end: 19980922
  2. UNKNOWN [Concomitant]

REACTIONS (7)
  - CARDIAC TAMPONADE [None]
  - DISEASE COMPLICATION [None]
  - INAPPROPRIATE ANTIDIURETIC HORMONE SECRETION [None]
  - LUNG NEOPLASM MALIGNANT [None]
  - MALIGNANT PERICARDIAL NEOPLASM [None]
  - METASTASES TO CENTRAL NERVOUS SYSTEM [None]
  - SMALL CELL LUNG CANCER STAGE UNSPECIFIED [None]
